FAERS Safety Report 8898643 (Version 1)
Quarter: 2012Q4

REPORT INFORMATION
  Report Type: 
  Country: US (occurrence: US)
  Receive Date: 20121108
  Receipt Date: 20121108
  Transmission Date: 20130627
  Serious: No
  Sender: FDA-Public Use
  Company Number: US-AMGEN-USASP2012031496

PATIENT
  Age: 32 Year
  Sex: Female
  Weight: 86.17 kg

DRUGS (5)
  1. ENBREL [Suspect]
     Indication: PRODUCT USED FOR UNKNOWN INDICATION
     Dosage: 50 mg, qwk
     Route: 058
  2. SULFASALAZIN [Concomitant]
     Dosage: 500 mg, UNK
  3. IBUPROFEN [Concomitant]
     Dosage: 200 mg, UNK
  4. TYLENOL /00020001/ [Concomitant]
     Dosage: 500 mg, UNK
  5. CYCLOBENZAPRINE [Concomitant]
     Dosage: 5 mg, UNK

REACTIONS (2)
  - Injection site reaction [Unknown]
  - Oropharyngeal pain [Unknown]
